FAERS Safety Report 25612092 (Version 1)
Quarter: 2025Q3

REPORT INFORMATION
  Report Type: Spontaneous
  Country: TW (occurrence: TW)
  Receive Date: 20250728
  Receipt Date: 20250728
  Transmission Date: 20251020
  Serious: Yes (Other)
  Sender: AMGEN
  Company Number: TW-PFIZER INC-PV202500087096

PATIENT
  Sex: Male

DRUGS (1)
  1. ENBREL [Suspect]
     Active Substance: ETANERCEPT
     Indication: Ankylosing spondylitis
     Dosage: 25 MG, 1X/DAY
     Route: 058
     Dates: start: 20110404

REACTIONS (3)
  - Drug ineffective [Unknown]
  - Iritis [Unknown]
  - Off label use [Unknown]

NARRATIVE: CASE EVENT DATE: 20110404
